FAERS Safety Report 6457178-8 (Version None)
Quarter: 2009Q4

REPORT INFORMATION
  Report Type: 
  Country: None (occurrence: None)
  Receive Date: 20091125
  Receipt Date: 20091117
  Transmission Date: 20100525
  Serious: Yes (Hospitalization, Disabling)
  Sender: FDA-Public Use
  Company Number: US-GENENTECH-294548

PATIENT
  Sex: Female
  Weight: 47.9 kg

DRUGS (2)
  1. RITUXIMAB [Suspect]
     Dosage: 800 MG, UNK
     Route: 042
     Dates: start: 20070726
  2. RITUXIMAB [Suspect]
     Dosage: 1000 MG, UNK
     Route: 042

REACTIONS (1)
  - SYNCOPE [None]
